FAERS Safety Report 18456235 (Version 4)
Quarter: 2021Q1

REPORT INFORMATION
  Report Type: Spontaneous
  Country: EG (occurrence: EG)
  Receive Date: 20201103
  Receipt Date: 20210106
  Transmission Date: 20210419
  Serious: Yes (Death, Other)
  Sender: FDA-Public Use
  Company Number: EG-SA-2020SA112367

PATIENT

DRUGS (1)
  1. MYOZYME [Suspect]
     Active Substance: ALGLUCOSIDASE ALFA
     Indication: GLYCOGEN STORAGE DISEASE TYPE II
     Dosage: 20 MG/KG, QOW
     Route: 065

REACTIONS (4)
  - Cardiac failure [Unknown]
  - General physical health deterioration [Fatal]
  - Oesophageal perforation [Fatal]
  - Pneumoperitoneum [Fatal]
